FAERS Safety Report 7989388-2 (Version None)
Quarter: 2011Q4

REPORT INFORMATION
  Report Type: 
  Country: None (occurrence: None)
  Receive Date: 20111215
  Receipt Date: 20111205
  Transmission Date: 20120403
  Serious: Yes (Other)
  Sender: FDA-Public Use
  Company Number: 1000025998

PATIENT
  Sex: Female

DRUGS (3)
  1. CYMBALTA [Suspect]
  2. LEXAPRO [Suspect]
  3. ZOLOFT [Suspect]
     Indication: DEPRESSION
     Dates: start: 20111101

REACTIONS (6)
  - DEPRESSION [None]
  - CONDITION AGGRAVATED [None]
  - EMOTIONAL DISORDER [None]
  - CRYING [None]
  - DRUG INEFFECTIVE [None]
  - SOCIAL AVOIDANT BEHAVIOUR [None]
